FAERS Safety Report 14171294 (Version 1)
Quarter: 2017Q4

REPORT INFORMATION
  Report Type: Spontaneous
  Country: BR (occurrence: BR)
  Receive Date: 20171108
  Receipt Date: 20171108
  Transmission Date: 20180321
  Serious: Yes (Hospitalization)
  Sender: FDA-Public Use
  Company Number: BR-SA-2017SA211941

PATIENT
  Age: 66 Year
  Sex: Female
  Weight: 78 kg

DRUGS (12)
  1. JANUMET [Concomitant]
     Active Substance: METFORMIN HYDROCHLORIDE\SITAGLIPTIN PHOSPHATE
     Indication: DIABETES MELLITUS
     Dosage: START DATE: SINCE THE MEDICATION WAS RELEASED
     Route: 048
  2. LANTUS [Suspect]
     Active Substance: INSULIN GLARGINE
     Indication: TYPE 2 DIABETES MELLITUS
     Route: 058
  3. LIPANON [Concomitant]
     Active Substance: FENOFIBRATE
     Dosage: START DATE: MANY YEARS?AT LUNCH TIME
     Route: 048
  4. SOTALOL HYDROCHLORIDE. [Concomitant]
     Active Substance: SOTALOL HYDROCHLORIDE
     Indication: ARRHYTHMIA
     Route: 048
     Dates: start: 2007
  5. LANTUS [Suspect]
     Active Substance: INSULIN GLARGINE
     Indication: TYPE 2 DIABETES MELLITUS
     Dosage: INJECTING 40IU IN THE MORNING AND 30IU IN THE END OF THE DAY
     Route: 058
  6. AAS [Concomitant]
     Active Substance: ASPIRIN
     Dosage: START DATE: MANY YEARS?AT LUNCH TIME
     Route: 048
  7. DIAMICRON [Concomitant]
     Active Substance: GLICLAZIDE
     Indication: DIABETES MELLITUS
     Route: 048
  8. VYTORIN [Concomitant]
     Active Substance: EZETIMIBE\SIMVASTATIN
     Indication: BLOOD CHOLESTEROL
     Dosage: START DATE: MANY YEARS?AT NIGHT
     Route: 048
  9. CLOPIDOGREL BISULFATE. [Concomitant]
     Active Substance: CLOPIDOGREL BISULFATE
     Indication: ANTICOAGULANT THERAPY
     Dosage: START DATE: MANY YEARS?AT LUNCH TIME
     Route: 048
  10. CLIKSTAR [Concomitant]
     Active Substance: CLIKSTAR
     Dosage: 3 OR 4 YEARS AGO
  11. ENALAPRIL MALEATE. [Concomitant]
     Active Substance: ENALAPRIL MALEATE
     Indication: BLOOD PRESSURE MEASUREMENT
     Dosage: START DATE: 5-6 YEARS AGO
     Route: 048
  12. JARDIANCE [Concomitant]
     Active Substance: EMPAGLIFLOZIN
     Indication: DIABETES MELLITUS
     Dosage: IN THE MORNING
     Route: 048
     Dates: start: 2015

REACTIONS (2)
  - Infarction [Unknown]
  - Product use issue [Unknown]
